FAERS Safety Report 5659688-X (Version None)
Quarter: 2008Q1

REPORT INFORMATION
  Report Type: 
  Country: None (occurrence: None)
  Receive Date: 20080311
  Receipt Date: 20080307
  Transmission Date: 20080703
  Serious: Yes (Hospitalization, Other)
  Sender: FDA-Public Use
  Company Number: HQWYE133522DEC05

PATIENT
  Sex: Female
  Weight: 103.06 kg

DRUGS (9)
  1. SIROLIMUS [Suspect]
     Indication: PROPHYLAXIS AGAINST TRANSPLANT REJECTION
     Dosage: UNKNOWN
     Route: 065
     Dates: start: 20030919, end: 20051118
  2. INSULIN [Concomitant]
     Indication: DIABETES MELLITUS
     Dosage: UNKNOWN
     Route: 065
  3. CARDIZEM CD [Concomitant]
     Indication: HYPERTENSION
     Route: 048
     Dates: start: 19980107
  4. PREDNISONE TAB [Concomitant]
     Indication: IMMUNOSUPPRESSANT DRUG THERAPY
     Route: 045
     Dates: start: 19980109
  5. HUMALOG [Concomitant]
     Indication: DIABETES MELLITUS
     Dosage: 3 U PRIOR TO LUNCH, 5 U PRIOR TO DINNER
     Route: 058
     Dates: start: 20020110
  6. HUMULIN N [Concomitant]
     Indication: DIABETES MELLITUS
     Dosage: 30 U Q AM, 17 U Q PM
     Route: 058
     Dates: start: 20010110
  7. PAXIL [Concomitant]
     Indication: DEPRESSION
     Route: 048
     Dates: start: 20010425
  8. CLONIDINE [Concomitant]
     Indication: HYPERTENSION
     Route: 048
     Dates: start: 20021213, end: 20051101
  9. CELLCEPT [Concomitant]
     Indication: IMMUNOSUPPRESSANT DRUG THERAPY
     Route: 048
     Dates: start: 20021003

REACTIONS (2)
  - GASTROENTERITIS VIRAL [None]
  - NEPHROPATHY [None]
